FAERS Safety Report 26142576 (Version 1)
Quarter: 2025Q4

REPORT INFORMATION
  Report Type: Spontaneous
  Country: CN (occurrence: CN)
  Receive Date: 20251210
  Receipt Date: 20251210
  Transmission Date: 20260117
  Serious: Yes (Life-Threatening)
  Sender: Haleon PLC
  Company Number: CN-HALEON-2278268

PATIENT
  Age: 23 Year
  Sex: Male
  Weight: 75 kg

DRUGS (2)
  1. IBUPROFEN [Suspect]
     Active Substance: IBUPROFEN
     Indication: Analgesic therapy
     Dosage: SUSTAINED-RELEASE CAPSULES
     Dates: start: 20251206, end: 20251206
  2. IBUPROFEN [Suspect]
     Active Substance: IBUPROFEN
     Indication: Sedative therapy

REACTIONS (6)
  - Dyspnoea [Recovered/Resolved]
  - Discomfort [Recovered/Resolved]
  - Wheezing [Recovered/Resolved]
  - Orthopnoea [Recovered/Resolved]
  - Hyperhidrosis [Recovered/Resolved]
  - Peripheral coldness [Recovered/Resolved]

NARRATIVE: CASE EVENT DATE: 20251206
